FAERS Safety Report 10726117 (Version 1)
Quarter: 2015Q1

REPORT INFORMATION
  Report Type: Spontaneous
  Country: US (occurrence: US)
  Receive Date: 20150121
  Receipt Date: 20150121
  Transmission Date: 20150721
  Serious: Yes (Hospitalization)
  Sender: FDA-Public Use
  Company Number: US-SA-2015SA005703

PATIENT
  Age: 82 Year
  Sex: Female

DRUGS (4)
  1. SOLOSTAR [Concomitant]
     Active Substance: DEVICE
  2. PREDNISONE. [Concomitant]
     Active Substance: PREDNISONE
  3. NOVOLOG [Concomitant]
     Active Substance: INSULIN ASPART
  4. LANTUS SOLOSTAR [Suspect]
     Active Substance: INSULIN GLARGINE
     Indication: TYPE 2 DIABETES MELLITUS
     Dosage: DOSE: 40 U QAM AND 60 U QHS
     Route: 065
     Dates: start: 2007

REACTIONS (6)
  - Drug administration error [Unknown]
  - Fluid retention [Unknown]
  - Cardiac failure congestive [Unknown]
  - Asthenia [Unknown]
  - Chest pain [Recovering/Resolving]
  - Blood glucose increased [Unknown]

NARRATIVE: CASE EVENT DATE: 2007
